FAERS Safety Report 23391038 (Version 7)
Quarter: 2025Q1

REPORT INFORMATION
  Report Type: Spontaneous
  Country: US (occurrence: US)
  Receive Date: 20240111
  Receipt Date: 20250324
  Transmission Date: 20250408
  Serious: Yes (Hospitalization, Other)
  Sender: CSL BEHRING
  Company Number: US-BEH-2024167086

PATIENT
  Age: 2 Year
  Sex: Male

DRUGS (8)
  1. HUMATE-P [Suspect]
     Active Substance: HUMAN COAGULATION FACTOR VIII/VON WILLEBRAND FACTOR COMPLEX
     Indication: Von Willebrand^s disease
     Dosage: 560 RCOF UNITS, TIW(MONDAY, WEDNESDAY, FRIDAY)
     Route: 042
     Dates: start: 202208
  2. HUMATE-P [Suspect]
     Active Substance: HUMAN COAGULATION FACTOR VIII/VON WILLEBRAND FACTOR COMPLEX
     Route: 042
     Dates: start: 202208
  3. HUMATE-P [Suspect]
     Active Substance: HUMAN COAGULATION FACTOR VIII/VON WILLEBRAND FACTOR COMPLEX
     Dosage: 620 RCOF UNITS, TIW(MONDAY, WEDNESDAY, FRIDAY), STRENGTH: 600
     Route: 042
     Dates: start: 202208
  4. HUMATE-P [Suspect]
     Active Substance: HUMAN COAGULATION FACTOR VIII/VON WILLEBRAND FACTOR COMPLEX
     Route: 042
     Dates: start: 202208
  5. HEPARIN [Concomitant]
     Active Substance: HEPARIN SODIUM
     Route: 065
  6. SODIUM CHLORIDE [Concomitant]
     Active Substance: SODIUM CHLORIDE
     Route: 065
  7. LIDOCAINE AND PRILOCAINE [Concomitant]
     Active Substance: LIDOCAINE\PRILOCAINE
     Route: 065
  8. VANCOMYCIN [Concomitant]
     Active Substance: VANCOMYCIN

REACTIONS (13)
  - Catheter site infection [Unknown]
  - Muscle haemorrhage [Unknown]
  - Fracture [Unknown]
  - Haemarthrosis [Unknown]
  - Epistaxis [Unknown]
  - Fall [Unknown]
  - Epistaxis [Unknown]
  - Fall [Unknown]
  - Lip haemorrhage [Unknown]
  - Lip injury [Unknown]
  - Epistaxis [Unknown]
  - Fall [Unknown]
  - Unevaluable event [Unknown]

NARRATIVE: CASE EVENT DATE: 20231128
